FAERS Safety Report 22063714 (Version 1)
Quarter: 2023Q1

REPORT INFORMATION
  Report Type: Spontaneous
  Country: SE (occurrence: SE)
  Receive Date: 20230306
  Receipt Date: 20230306
  Transmission Date: 20230417
  Serious: Yes (Other)
  Sender: FDA-Public Use
  Company Number: SE-SANOFI-01510277

PATIENT
  Sex: Female

DRUGS (1)
  1. PRALUENT [Suspect]
     Active Substance: ALIROCUMAB
     Indication: Product used for unknown indication
     Dosage: UNK UNK, QOW
     Route: 065

REACTIONS (5)
  - Myocardial infarction [Unknown]
  - Neoplasm malignant [Unknown]
  - Illness [Unknown]
  - Malaise [Unknown]
  - Inappropriate schedule of product administration [Unknown]
